FAERS Safety Report 21508054 (Version 1)
Quarter: 2022Q4

REPORT INFORMATION
  Report Type: Spontaneous
  Country: FR (occurrence: FR)
  Receive Date: 20221026
  Receipt Date: 20221026
  Transmission Date: 20230112
  Serious: Yes (Hospitalization)
  Sender: FDA-Public Use
  Company Number: None

PATIENT
  Age: 82 Year
  Sex: Female

DRUGS (8)
  1. FOSFOMYCIN [Suspect]
     Active Substance: FOSFOMYCIN
     Indication: Urinary tract infection
     Dosage: 3G D1 D3 D5 , UNIT DOSE : 3 GRAM   , FREQUENCY TIME : 2 DAY , DURATION : 5 DAYS
     Dates: start: 20220824, end: 20220829
  2. AMLODIPINE [Suspect]
     Active Substance: AMLODIPINE BESYLATE
     Indication: Hypertension
     Dosage: IF NECESSARY , UNIT DOSE : 5 MG   , DURATION :  4 DAYS
     Dates: start: 20220825, end: 20220829
  3. LENVIMA [Suspect]
     Active Substance: LENVATINIB
     Indication: Thyroid cancer
     Dosage: 18MG , UNIT DOSE : 18 MG   , FREQUENCY TIME : 1 DAY  , DURATION :  22 DAYS
     Dates: start: 20220807, end: 20220829
  4. FUROSEMIDE [Concomitant]
     Active Substance: FUROSEMIDE
     Indication: Hypertension
     Dosage: 40 MILLIGRAM DAILY; 40MG IN THE MORNING
  5. LEVOTHYROXINE SODIUM [Concomitant]
     Active Substance: LEVOTHYROXINE SODIUM
     Indication: Thyroid cancer
     Dosage: 112 MICROGRAM DAILY; 112 MICROGRAMS IN THE MORNING , LEVOTHYROXINE SODIQUE
  6. FEBUXOSTAT [Concomitant]
     Active Substance: FEBUXOSTAT
     Indication: Hyperuricaemia
     Dosage: 80 MG EVERY OTHER DAY, UNIT DOSE : 80 MG , FREQUENCY TIME : 2 DAY
  7. PERINDOPRIL [Concomitant]
     Active Substance: PERINDOPRIL
     Indication: Hypertension
     Dosage: NOT SPECIFIED , UNIT DOSE : 2 MG , FREQUENCY TIME : 1 DAY
     Dates: start: 20220825
  8. ESOMEPRAZOLE [Concomitant]
     Active Substance: ESOMEPRAZOLE
     Indication: Gastrooesophageal reflux disease
     Dosage: 20 MILLIGRAM DAILY; 20MG IN THE EVENING

REACTIONS (1)
  - Pancreatitis acute [Recovered/Resolved]

NARRATIVE: CASE EVENT DATE: 20220826
